FAERS Safety Report 18292834 (Version 1)
Quarter: 2020Q3

REPORT INFORMATION
  Report Type: Report from Study
  Country: None (occurrence: BR)
  Receive Date: 20200922
  Receipt Date: 20200922
  Transmission Date: 20201103
  Serious: Yes (Other)
  Sender: FDA-Public Use
  Company Number: BR-ABBVIE-18K-020-2431342-00

PATIENT
  Sex: Female
  Weight: 81 kg

DRUGS (1)
  1. HUMIRA [Suspect]
     Active Substance: ADALIMUMAB
     Indication: CROHN^S DISEASE
     Route: 058
     Dates: start: 20170627

REACTIONS (12)
  - Hyperphagia [Recovering/Resolving]
  - Knee deformity [Not Recovered/Not Resolved]
  - Increased appetite [Recovering/Resolving]
  - Chondropathy [Unknown]
  - Tremor [Recovering/Resolving]
  - Gait disturbance [Not Recovered/Not Resolved]
  - Arthritis [Unknown]
  - Joint effusion [Unknown]
  - Fatigue [Not Recovered/Not Resolved]
  - Osteoarthritis [Not Recovered/Not Resolved]
  - Anxiety [Not Recovered/Not Resolved]
  - Pain [Not Recovered/Not Resolved]

NARRATIVE: CASE EVENT DATE: 2017
